FAERS Safety Report 4554349-2 (Version None)
Quarter: 2004Q4

REPORT INFORMATION
  Report Type: 
  Country: None (occurrence: None)
  Receive Date: 20041222
  Receipt Date: 20041109
  Transmission Date: 20050328
  Serious: No
  Sender: FDA-Public Use
  Company Number: 210305

PATIENT
  Age: 53 Year
  Sex: Female

DRUGS (4)
  1. AVASTIN [Suspect]
     Indication: RECTAL CANCER RECURRENT
     Dosage: 335 MG, Q2W, INTRAVENOUS
     Route: 042
     Dates: start: 20041011
  2. FLUOROURACIL [Concomitant]
  3. LEUCOVORIN CALCIUM [Concomitant]
  4. IRINOTECAN HYDROCHLORIDE (IRINOTECAN HYDROCHLORIDE) [Concomitant]

REACTIONS (1)
  - BLOOD URINE PRESENT [None]
